FAERS Safety Report 5989132-4 (Version None)
Quarter: 2008Q4

REPORT INFORMATION
  Report Type: 
  Country: None (occurrence: None)
  Receive Date: 20081210
  Receipt Date: 20081203
  Transmission Date: 20090506
  Serious: Yes (Other)
  Sender: FDA-Public Use
  Company Number: US-JNJFOC-20081201609

PATIENT
  Age: 5 Day
  Sex: Female

DRUGS (1)
  1. INFANTS' MYLICON NON-STAINING FORMULA [Suspect]
     Indication: DRUG USE FOR UNKNOWN INDICATION
     Dosage: UNKNOWN
     Route: 048

REACTIONS (4)
  - CHOKING [None]
  - CONSTIPATION [None]
  - PRODUCT QUALITY ISSUE [None]
  - VOMITING [None]
